FAERS Safety Report 6552919-3 (Version None)
Quarter: 2010Q1

REPORT INFORMATION
  Report Type: 
  Country: None (occurrence: None)
  Receive Date: 20100122
  Receipt Date: 20100112
  Transmission Date: 20100710
  Serious: Yes (Other)
  Sender: FDA-Public Use
  Company Number: TPG2009A00866

PATIENT
  Age: 58 Year
  Sex: Female

DRUGS (5)
  1. COMPETACT (PIOGLITAZONE HYDROCHLORIDE, METFORMIN HYDROCHLORIDE) [Suspect]
     Indication: TYPE 2 DIABETES MELLITUS
     Dosage: PIOGLITAZONE/METFORMIN 30/1700 MG PER ORAL
     Route: 048
     Dates: start: 20070801, end: 20090801
  2. DIOVAN HCT [Concomitant]
  3. BISOPROLOL FUMARATE [Concomitant]
  4. SIMVASTATIN [Concomitant]
  5. LEVOTHYROXINE SODIUM [Concomitant]

REACTIONS (1)
  - NORMOCHROMIC NORMOCYTIC ANAEMIA [None]
